FAERS Safety Report 8427851-0 (Version None)
Quarter: 2012Q2

REPORT INFORMATION
  Report Type: 
  Country: None (occurrence: None)
  Receive Date: 20120611
  Receipt Date: 20120531
  Transmission Date: 20120825
  Serious: Yes (Hospitalization)
  Sender: FDA-Public Use
  Company Number: FR-ASTRAZENECA-2012SE34100

PATIENT
  Sex: Female

DRUGS (6)
  1. TERCIAN [Concomitant]
  2. ESCITALOPRAM [Concomitant]
  3. SLEEPING DRUG (UNSPECIFIED) [Concomitant]
  4. QUETIAPINE FUMARATE [Suspect]
     Route: 048
     Dates: start: 20120516, end: 20120516
  5. VALIUM [Concomitant]
  6. CITALOPRAM HYDROBROMIDE [Concomitant]

REACTIONS (2)
  - CYTOLYTIC HEPATITIS [None]
  - HYPOTENSION [None]
